FAERS Safety Report 8849290 (Version 1)
Quarter: 2012Q4

REPORT INFORMATION
  Report Type: 
  Country: US (occurrence: US)
  Receive Date: 20121019
  Receipt Date: 20121019
  Transmission Date: 20130627
  Serious: No
  Sender: FDA-Public Use
  Company Number: US-009507513-1210USA006928

PATIENT
  Age: 71 Year
  Sex: Male

DRUGS (3)
  1. DULERA [Suspect]
  2. ASTEPRO [Concomitant]
  3. OMNARIS [Concomitant]

REACTIONS (1)
  - Lip swelling [Recovered/Resolved]
